FAERS Safety Report 5421086-1 (Version None)
Quarter: 2007Q3

REPORT INFORMATION
  Report Type: 
  Country: None (occurrence: None)
  Receive Date: 20070817
  Receipt Date: 20070810
  Transmission Date: 20080115
  Serious: Yes (Hospitalization, Other)
  Sender: FDA-Public Use
  Company Number: 163-20785-07080706

PATIENT
  Age: 74 Year
  Sex: Male

DRUGS (16)
  1. THALOMID [Suspect]
     Indication: MYELODYSPLASTIC SYNDROME
     Dosage: 50 MG, QHS, ORAL, ORAL
     Route: 048
     Dates: start: 20070625, end: 20070627
  2. THALOMID [Suspect]
     Indication: MYELODYSPLASTIC SYNDROME
     Dosage: 50 MG, QHS, ORAL, ORAL
     Route: 048
     Dates: start: 20070628
  3. TRISENOX [Suspect]
     Indication: MYELODYSPLASTIC SYNDROME
     Dosage: 20.7 MG TWICE WEEKLY, INTRAVENOUS DRIP, 20.7 MG TWICE WEEKLY, INTRAVENOUS
     Dates: start: 20070604, end: 20070616
  4. TRISENOX [Suspect]
     Indication: MYELODYSPLASTIC SYNDROME
     Dosage: 20.7 MG TWICE WEEKLY, INTRAVENOUS DRIP, 20.7 MG TWICE WEEKLY, INTRAVENOUS
     Dates: start: 20070625
  5. SIROLIMUS (SIROLIMUS) [Suspect]
     Indication: IMMUNOSUPPRESSANT DRUG THERAPY
  6. FLUOCINONIDE [Concomitant]
  7. EXJADE [Concomitant]
  8. HUMALOG [Concomitant]
  9. ZAROXOLYN [Concomitant]
  10. INSULIN (INSULIN) [Concomitant]
  11. LANTUS [Concomitant]
  12. PREDNISONE TAB [Concomitant]
  13. CELLCEPT [Concomitant]
  14. K-DUR 10 [Concomitant]
  15. DEXAMETHASONE TAB [Concomitant]
  16. ASCORBIC ACID [Concomitant]

REACTIONS (8)
  - BLOOD ALBUMIN DECREASED [None]
  - BLOOD CALCIUM DECREASED [None]
  - BLOOD GLUCOSE INCREASED [None]
  - GENERALISED OEDEMA [None]
  - HAEMOGLOBIN DECREASED [None]
  - PROTEIN TOTAL DECREASED [None]
  - PROTEIN URINE PRESENT [None]
  - RED BLOOD CELL COUNT DECREASED [None]
